FAERS Safety Report 7268166-6 (Version None)
Quarter: 2011Q1

REPORT INFORMATION
  Report Type: 
  Country: None (occurrence: None)
  Receive Date: 20110201
  Receipt Date: 20101130
  Transmission Date: 20110831
  Serious: No
  Sender: FDA-Public Use
  Company Number: US-BAYER-2010-001857

PATIENT
  Sex: Female
  Weight: 150 kg

DRUGS (1)
  1. ALEVE (CAPLET) [Suspect]
     Indication: HEADACHE
     Dosage: UNK
     Route: 048
     Dates: start: 20100101

REACTIONS (3)
  - STOMATITIS [None]
  - RASH [None]
  - HYPERSENSITIVITY [None]
